FAERS Safety Report 9269826 (Version 4)
Quarter: 2013Q2

REPORT INFORMATION
  Report Type: Spontaneous
  Country: DK (occurrence: DK)
  Receive Date: 20130503
  Receipt Date: 20130621
  Transmission Date: 20140414
  Serious: Yes (Hospitalization, Disabling, Other)
  Sender: FDA-Public Use
  Company Number: DK-JNJFOC-20130413043

PATIENT
  Age: 67 Year
  Sex: Male

DRUGS (15)
  1. DUROGESIC [Suspect]
     Indication: PRODUCT USED FOR UNKNOWN INDICATION
     Route: 062
     Dates: start: 20130314
  2. DUROGESIC [Suspect]
     Indication: PRODUCT USED FOR UNKNOWN INDICATION
     Route: 062
     Dates: start: 20130312
  3. DUROGESIC [Suspect]
     Indication: PRODUCT USED FOR UNKNOWN INDICATION
     Route: 062
     Dates: start: 20130304, end: 20130311
  4. ENZALUTAMIDE [Interacting]
     Indication: PRODUCT USED FOR UNKNOWN INDICATION
     Route: 065
     Dates: start: 20121218, end: 20130311
  5. NAPROXEN [Concomitant]
     Indication: METASTASES TO BONE
     Route: 065
  6. PAMOL [Concomitant]
     Dosage: 2X3
     Route: 065
     Dates: start: 20130214
  7. CLONIDINE HYDROCHLORIDE [Concomitant]
     Dosage: 2X2
     Route: 065
     Dates: start: 20130214
  8. HJERTEMAGNYL [Concomitant]
     Route: 065
     Dates: start: 20130214
  9. MORFINE [Concomitant]
     Dosage: 1/2 TABLET AS NEEDED, NORMALLY 5-6 TIMES.
     Route: 065
     Dates: start: 20130214
  10. CRESTOR [Concomitant]
     Route: 065
     Dates: start: 20130214
  11. LYRICA [Concomitant]
     Route: 065
     Dates: start: 20130214
  12. UNIKALK BASIC [Concomitant]
     Route: 065
     Dates: start: 20130214
  13. PREDNISOLONE [Concomitant]
     Route: 065
     Dates: start: 20130214
  14. EMPERAL [Concomitant]
     Route: 065
     Dates: start: 20130214
  15. LANSOPRAZOL [Concomitant]
     Dosage: 2X2
     Route: 065
     Dates: start: 20130214

REACTIONS (7)
  - Anxiety disorder [Recovered/Resolved]
  - Vomiting [Recovered/Resolved]
  - Overdose [Unknown]
  - Tremor [Recovering/Resolving]
  - Hot flush [Recovering/Resolving]
  - Pain [Recovered/Resolved]
  - Drug interaction [Unknown]
